FAERS Safety Report 14785578 (Version 2)
Quarter: 2018Q2

REPORT INFORMATION
  Report Type: Spontaneous
  Country: CA (occurrence: CA)
  Receive Date: 20180420
  Receipt Date: 20180430
  Transmission Date: 20180711
  Serious: Yes (Other)
  Sender: FDA-Public Use
  Company Number: CA-PFIZER INC-2018157838

PATIENT
  Age: 43 Year
  Sex: Male

DRUGS (5)
  1. NOREPINEPHRINE BITARTRATE. [Suspect]
     Active Substance: NOREPINEPHRINE BITARTRATE
     Dosage: 0.46 MCG/KG/MIN, UNK
  2. NIMODIPINE. [Concomitant]
     Active Substance: NIMODIPINE
     Indication: PROPHYLAXIS
     Dosage: UNK
  3. NOREPINEPHRINE BITARTRATE. [Suspect]
     Active Substance: NOREPINEPHRINE BITARTRATE
     Indication: BLOOD PRESSURE MANAGEMENT
     Dosage: 0.02MCG/KG/MIN, UNK
  4. NOREPINEPHRINE BITARTRATE. [Suspect]
     Active Substance: NOREPINEPHRINE BITARTRATE
     Dosage: TITRATED TO 0.16 MCG/KG/MIN, UNK
  5. NOREPINEPHRINE BITARTRATE. [Suspect]
     Active Substance: NOREPINEPHRINE BITARTRATE
     Dosage: 0.68 MCG/KG/MIN, UNK

REACTIONS (3)
  - Condition aggravated [Recovering/Resolving]
  - Cerebral vasoconstriction [Recovering/Resolving]
  - Cerebral ischaemia [Recovering/Resolving]
